FAERS Safety Report 25305279 (Version 1)
Quarter: 2025Q2

REPORT INFORMATION
  Report Type: Spontaneous
  Country: US (occurrence: US)
  Receive Date: 20250513
  Receipt Date: 20250513
  Transmission Date: 20250716
  Serious: No
  Sender: BAYER HEALTHCARE LLC
  Company Number: US-BAYER-2025A059457

PATIENT
  Age: 5 Year
  Sex: Male

DRUGS (2)
  1. CHILDREN CLARITIN ALLERGY [Suspect]
     Active Substance: LORATADINE
     Indication: Prophylaxis
     Route: 048
     Dates: start: 20250427, end: 20250427
  2. CHILDREN CLARITIN ALLERGY [Suspect]
     Active Substance: LORATADINE
     Indication: Prophylaxis
     Dosage: 5 ML, BID
     Route: 048
     Dates: start: 20250428

REACTIONS (2)
  - Extra dose administered [Recovering/Resolving]
  - Drug ineffective [None]

NARRATIVE: CASE EVENT DATE: 20250428
